FAERS Safety Report 4584094-9 (Version None)
Quarter: 2005Q1

REPORT INFORMATION
  Report Type: 
  Country: None (occurrence: None)
  Receive Date: 20050216
  Receipt Date: 20050204
  Transmission Date: 20050727
  Serious: Yes (Hospitalization)
  Sender: FDA-Public Use
  Company Number: FR-ROCHE-394741

PATIENT
  Age: 26 Year
  Sex: Female

DRUGS (8)
  1. ROVALCYTE [Suspect]
     Indication: CYTOMEGALOVIRUS INFECTION
     Route: 048
     Dates: start: 20041223
  2. PIRILENE [Suspect]
     Indication: DRUG USE FOR UNKNOWN INDICATION
     Route: 048
     Dates: start: 20041218
  3. RIFADIN [Suspect]
     Indication: DRUG USE FOR UNKNOWN INDICATION
     Route: 048
     Dates: start: 20041218
  4. MYAMBUTOL [Suspect]
     Indication: DRUG USE FOR UNKNOWN INDICATION
     Route: 048
     Dates: start: 20041218
  5. RIMIFON [Suspect]
     Indication: DRUG USE FOR UNKNOWN INDICATION
     Route: 048
     Dates: start: 20041218
  6. VIDEX [Concomitant]
     Dates: start: 20041207
  7. EPIVIR [Concomitant]
  8. BACTRIM DS [Concomitant]
     Dosage: TREATMENT RE-INTRODUCED ON 3 JAN 2005.
     Dates: start: 20041207, end: 20041215

REACTIONS (1)
  - AGRANULOCYTOSIS [None]
